FAERS Safety Report 7970358-5 (Version None)
Quarter: 2011Q4

REPORT INFORMATION
  Report Type: 
  Country: None (occurrence: None)
  Receive Date: 20111122
  Receipt Date: 20110725
  Transmission Date: 20120403
  Serious: No
  Sender: FDA-Public Use
  Company Number: PHHY2011US11693

PATIENT
  Age: 49 Year
  Sex: Female
  Weight: 59 kg

DRUGS (1)
  1. GILENYA [Suspect]
     Indication: MULTIPLE SCLEROSIS
     Dosage: 0.5 MG, QD, ORAL
     Route: 048
     Dates: start: 20110209

REACTIONS (9)
  - SKIN PAPILLOMA [None]
  - HEADACHE [None]
  - ALANINE AMINOTRANSFERASE INCREASED [None]
  - DYSPNOEA [None]
  - MIGRAINE [None]
  - BLOOD CHOLESTEROL INCREASED [None]
  - LYMPHOCYTE COUNT DECREASED [None]
  - BLOOD CALCIUM INCREASED [None]
  - WHITE BLOOD CELL COUNT INCREASED [None]
